FAERS Safety Report 8960648 (Version 8)
Quarter: 2013Q1

REPORT INFORMATION
  Report Type: Spontaneous
  Country: US (occurrence: US)
  Receive Date: 20121212
  Receipt Date: 20130329
  Transmission Date: 20140127
  Serious: Yes (Hospitalization, Disabling, Other)
  Sender: FDA-Public Use
  Company Number: US-009507513-1203USA00023

PATIENT
  Sex: Female
  Weight: 55.78 kg

DRUGS (3)
  1. FOSAMAX [Suspect]
     Indication: OSTEOPOROSIS
     Dosage: 70 MG, QW
     Route: 048
     Dates: start: 200301, end: 201002
  2. CENTRUM SILVER [Concomitant]
     Dosage: UNK, QD
     Dates: start: 1985
  3. CALCIUM (UNSPECIFIED) (+) VITAMIN D (UNSPECIFIED) [Concomitant]
     Dosage: UNK, TID
     Dates: start: 1985

REACTIONS (19)
  - Intramedullary rod insertion [Unknown]
  - Osteoporosis [Unknown]
  - Femur fracture [Unknown]
  - Femur fracture [Unknown]
  - Fall [Unknown]
  - Spinal fusion surgery [Unknown]
  - Bone trimming [Unknown]
  - Medical device removal [Unknown]
  - Femur fracture [Unknown]
  - Cataract operation [Unknown]
  - Device failure [Unknown]
  - Tooth extraction [Unknown]
  - Hypertension [Unknown]
  - Type 2 diabetes mellitus [Unknown]
  - Fracture delayed union [Unknown]
  - Anaemia postoperative [Recovered/Resolved]
  - Thrombocytopenia [Unknown]
  - Back pain [Not Recovered/Not Resolved]
  - Pain in extremity [Recovered/Resolved]
